FAERS Safety Report 9549415 (Version 1)
Quarter: 2013Q3

REPORT INFORMATION
  Report Type: Spontaneous
  Country: US (occurrence: US)
  Receive Date: 20130924
  Receipt Date: 20130924
  Transmission Date: 20140515
  Serious: No
  Sender: FDA-Public Use
  Company Number: US-PFIZER INC-2013274515

PATIENT
  Age: 49 Year
  Sex: Female
  Weight: 56.69 kg

DRUGS (1)
  1. PRISTIQ [Suspect]
     Indication: ANXIETY
     Dosage: 50 MG, 1X/DAY
     Route: 048
     Dates: start: 201308, end: 2013

REACTIONS (3)
  - Off label use [Unknown]
  - Drug intolerance [Unknown]
  - Drug withdrawal syndrome [Unknown]
